FAERS Safety Report 10733844 (Version 1)
Quarter: 2015Q1

REPORT INFORMATION
  Report Type: Spontaneous
  Country: US (occurrence: US)
  Receive Date: 20150123
  Receipt Date: 20150123
  Transmission Date: 20150721
  Serious: No
  Sender: FDA-Public Use
  Company Number: US-BRACCO-011391

PATIENT
  Age: 52 Year
  Sex: Male
  Weight: 145 kg

DRUGS (1)
  1. CARDIOGEN-82 [Suspect]
     Active Substance: RUBIDIUM CHLORIDE RB-82
     Indication: DIAGNOSTIC PROCEDURE
     Route: 042
     Dates: start: 20140929, end: 20140929

REACTIONS (1)
  - Drug effect decreased [Recovered/Resolved]

NARRATIVE: CASE EVENT DATE: 20140929
